FAERS Safety Report 4298693-5 (Version None)
Quarter: 2004Q1

REPORT INFORMATION
  Report Type: 
  Country: None (occurrence: None)
  Receive Date: 20040126
  Receipt Date: 20030910
  Transmission Date: 20041129
  Serious: No
  Sender: FDA-Public Use
  Company Number: USA030946859

PATIENT
  Sex: Male

DRUGS (3)
  1. STRATTERA [Suspect]
     Indication: ATTENTION DEFICIT/HYPERACTIVITY DISORDER
     Dosage: 100 MG
  2. RATALIN (METHYLPHENIDATE HYDROCHLORIDE) [Concomitant]
  3. LEXAPRO [Concomitant]

REACTIONS (7)
  - AGITATION [None]
  - ERECTILE DYSFUNCTION [None]
  - MOOD ALTERED [None]
  - NAUSEA [None]
  - PREMATURE EJACULATION [None]
  - VISUAL DISTURBANCE [None]
  - VOMITING [None]
